FAERS Safety Report 7379076-8 (Version None)
Quarter: 2011Q1

REPORT INFORMATION
  Report Type: 
  Country: None (occurrence: None)
  Receive Date: 20110328
  Receipt Date: 20110315
  Transmission Date: 20110831
  Serious: Yes (Hospitalization, Other)
  Sender: FDA-Public Use
  Company Number: US-ELI_LILLY_AND_COMPANY-US201103005379

PATIENT
  Sex: Female

DRUGS (17)
  1. TOPAMAX [Concomitant]
     Dosage: 100 MG, 2/D
  2. VITAMIN D [Concomitant]
     Dosage: 2 G, DAILY (1/D)
  3. NEXIUM [Concomitant]
     Indication: GASTROOESOPHAGEAL REFLUX DISEASE
     Dosage: 40 MG, DAILY (1/D)
  4. OXYGEN [Concomitant]
     Dosage: 2 LITER, EACH EVENING
  5. CELEBREX [Concomitant]
     Dosage: 200 MG, DAILY (1/D)
  6. LEXAPRO [Concomitant]
     Indication: DEPRESSION
     Dosage: 10 MG, DAILY (1/D)
  7. FINGOLIMOD [Concomitant]
     Indication: MULTIPLE SCLEROSIS
     Dosage: 0.5 MG, DAILY (1/D)
  8. BACLOFEN [Concomitant]
     Indication: MUSCLE SPASTICITY
     Dosage: 10 MG, 2/D
  9. MULTI-VITAMIN [Concomitant]
     Dosage: UNK, DAILY (1/D)
  10. FORTEO [Suspect]
     Indication: OSTEOPOROSIS
     Dosage: 20 UG, DAILY (1/D)
  11. BYSTOLIC [Concomitant]
     Dosage: 5 MG, DAILY (1/D)
  12. ASPIRIN [Concomitant]
     Dosage: 81 MG, DAILY (1/D)
  13. FOLIC ACID [Concomitant]
     Dosage: 1 MG, DAILY (1/D)
  14. EFFIENT [Concomitant]
     Dosage: 10 MG, DAILY (1/D)
  15. CRESTOR [Concomitant]
     Indication: BLOOD CHOLESTEROL
     Dosage: 10 MG, DAILY (1/D)
  16. SYNTHROID [Concomitant]
     Dosage: 50 UG, DAILY (1/D)
  17. METHOTREXATE [Concomitant]
     Indication: MULTIPLE SCLEROSIS
     Dosage: 2.5 MG, WEEKLY (1/W)

REACTIONS (3)
  - CHEST PAIN [None]
  - MYOCARDIAL INFARCTION [None]
  - ASTHENIA [None]
